FAERS Safety Report 5833463-5 (Version None)
Quarter: 2008Q3

REPORT INFORMATION
  Report Type: 
  Country: None (occurrence: None)
  Receive Date: 20080805
  Receipt Date: 20080728
  Transmission Date: 20090109
  Serious: Yes (Hospitalization, Other)
  Sender: FDA-Public Use
  Company Number: US-ASTRAZENECA-2006UW11525

PATIENT
  Age: 9092 Day
  Sex: Male
  Weight: 81.6 kg

DRUGS (16)
  1. SEROQUEL [Suspect]
     Indication: BIPOLAR DISORDER
     Dosage: 200 MG TO 400 MG
     Route: 048
     Dates: start: 20011011, end: 20051101
  2. SEROQUEL [Suspect]
     Indication: DEPRESSION
     Dosage: 200 MG TO 400 MG
     Route: 048
     Dates: start: 20011011, end: 20051101
  3. ZYPREXA [Concomitant]
     Route: 048
     Dates: start: 20021218
  4. ZYPREXA [Concomitant]
     Route: 048
     Dates: start: 20030506
  5. DEPAKOTE [Concomitant]
     Route: 048
     Dates: start: 20021010
  6. EFFEXOR [Concomitant]
     Route: 048
     Dates: start: 20021010
  7. PROTONIX [Concomitant]
     Route: 048
     Dates: start: 20021113
  8. ATENOLOL [Concomitant]
     Route: 048
     Dates: start: 20021113
  9. FLUOXETINE [Concomitant]
     Route: 048
     Dates: start: 20021218
  10. LITHIUM CARBONATE [Concomitant]
     Route: 048
     Dates: start: 20021218
  11. PREVACID [Concomitant]
     Route: 048
     Dates: start: 20030211
  12. HYOSCYAMINE [Concomitant]
     Route: 060
     Dates: start: 20030211
  13. IMITREX [Concomitant]
     Route: 048
     Dates: start: 20030211
  14. LISINOPRIL [Concomitant]
     Route: 048
     Dates: start: 20031027
  15. ZOLOFT [Concomitant]
     Route: 048
     Dates: start: 20060622
  16. ZOLOFT [Concomitant]
     Route: 048
     Dates: start: 20060629

REACTIONS (12)
  - ARTHRALGIA [None]
  - DIABETES MELLITUS [None]
  - DIABETES MELLITUS INADEQUATE CONTROL [None]
  - DIABETIC KETOACIDOSIS [None]
  - GASTROENTERITIS [None]
  - INGROWING NAIL [None]
  - IRRITABLE BOWEL SYNDROME [None]
  - JOINT INJURY [None]
  - MIGRAINE [None]
  - OVERDOSE [None]
  - PAIN IN EXTREMITY [None]
  - SUICIDE ATTEMPT [None]
